FAERS Safety Report 16918392 (Version 8)
Quarter: 2020Q1

REPORT INFORMATION
  Report Type: Report from Study
  Country: PL (occurrence: PL)
  Receive Date: 20191015
  Receipt Date: 20200121
  Transmission Date: 20200409
  Serious: Yes (Hospitalization)
  Sender: FDA-Public Use
  Company Number: PL-EISAI MEDICAL RESEARCH-EC-2019-063618

PATIENT
  Age: 49 Year
  Sex: Male
  Weight: 91 kg

DRUGS (13)
  1. PEMBROLIZUMAB. [Suspect]
     Active Substance: PEMBROLIZUMAB
     Route: 041
     Dates: start: 20190828, end: 20190828
  2. BISEPTOL [Concomitant]
     Active Substance: SULFAMETHOXAZOLE\TRIMETHOPRIM
     Dates: start: 20190927, end: 20191206
  3. ENTEROL [Concomitant]
     Dates: start: 20190917, end: 20190926
  4. PEMBROLIZUMAB. [Suspect]
     Active Substance: PEMBROLIZUMAB
     Indication: HEPATOCELLULAR CARCINOMA
     Route: 041
     Dates: start: 20190416, end: 20190726
  5. INDIX COMBI [Concomitant]
     Dates: start: 201212
  6. CONTROLOC [Concomitant]
     Active Substance: PANTOPRAZOLE SODIUM
     Dates: start: 20190803
  7. CIPRONEX [Concomitant]
     Active Substance: CIPROFLOXACIN
     Dates: start: 20190917, end: 20190926
  8. ENCORTON [Concomitant]
     Active Substance: PREDNISONE
     Dates: start: 20190916, end: 20191025
  9. LENVATINIB [Suspect]
     Active Substance: LENVATINIB
     Indication: HEPATOCELLULAR CARCINOMA
     Route: 048
     Dates: start: 20190416, end: 20191008
  10. TRAMADOL HYDROCHLORIDE. [Concomitant]
     Active Substance: TRAMADOL HYDROCHLORIDE
     Dates: start: 20190508
  11. HEVIRAN [Concomitant]
     Active Substance: ACYCLOVIR
     Dates: start: 20190917, end: 20191206
  12. LENVATINIB [Suspect]
     Active Substance: LENVATINIB
     Route: 048
     Dates: start: 20191011
  13. NEBILET [Concomitant]
     Active Substance: NEBIVOLOL
     Dates: start: 201212

REACTIONS (2)
  - Abdominal pain [Recovered/Resolved]
  - Infectious pleural effusion [Recovered/Resolved]

NARRATIVE: CASE EVENT DATE: 20191007
